FAERS Safety Report 20874278 (Version 3)
Quarter: 2022Q2

REPORT INFORMATION
  Report Type: Spontaneous
  Country: IE (occurrence: IE)
  Receive Date: 20220525
  Receipt Date: 20220620
  Transmission Date: 20220721
  Serious: Yes (Disabling)
  Sender: FDA-Public Use
  Company Number: None

PATIENT
  Age: 65 Year
  Sex: Female
  Weight: 76.272 kg

DRUGS (4)
  1. BUTRANS [Suspect]
     Active Substance: BUPRENORPHINE
     Indication: Pain
     Dosage: 5 MICROGRAM/HOUR, ON THE SIXTH PATCH.(STRENGTH: 5 MG)
     Route: 062
     Dates: start: 20220309, end: 20220413
  2. Anxicalm [Concomitant]
     Indication: Muscle spasms
     Dosage: 5 MILLIGRAM
     Route: 065
     Dates: start: 20220309, end: 20220315
  3. LEVOTHYROXINE [Concomitant]
     Active Substance: LEVOTHYROXINE
     Indication: Hypothyroidism
     Dosage: 100MCG/75MCG ALTERNATE DAYS
     Route: 065
     Dates: start: 2003
  4. ATORVASTATIN CLONMEL [Concomitant]
     Indication: Hypercholesterolaemia
     Dosage: 10 MILLIGRAM
     Route: 065
     Dates: start: 2003

REACTIONS (4)
  - Condition aggravated [Recovering/Resolving]
  - Nausea [Recovering/Resolving]
  - Vertigo [Recovering/Resolving]
  - Dizziness [Recovering/Resolving]

NARRATIVE: CASE EVENT DATE: 20220328
